FAERS Safety Report 6822360-4 (Version None)
Quarter: 2010Q3

REPORT INFORMATION
  Report Type: 
  Country: None (occurrence: None)
  Receive Date: 20100708
  Receipt Date: 20100625
  Transmission Date: 20110219
  Serious: Yes (Hospitalization, Other)
  Sender: FDA-Public Use
  Company Number: PHHY2010MX42035

PATIENT
  Age: 84 Year
  Sex: Female

DRUGS (2)
  1. DIOVAN HCT [Suspect]
     Indication: HYPERTENSION
     Dosage: 2 TABLETS (160/12.5 MG ) PER DAY
     Dates: start: 20080501
  2. DILACORON [Concomitant]

REACTIONS (2)
  - EYE DISORDER [None]
  - ORAL SURGERY [None]
